FAERS Safety Report 13083675 (Version 1)
Quarter: 2017Q1

REPORT INFORMATION
  Report Type: Spontaneous
  Country: US (occurrence: US)
  Receive Date: 20170104
  Receipt Date: 20170104
  Transmission Date: 20170428
  Serious: Yes (Death, Other)
  Sender: FDA-Public Use
  Company Number: US-BAUSCH-BL-2016-032774

PATIENT
  Age: 49 Year
  Sex: Female

DRUGS (2)
  1. DILTIAZEM. [Suspect]
     Active Substance: DILTIAZEM
     Indication: PRODUCT USED FOR UNKNOWN INDICATION
     Dosage: 80 TABLETS OF 120 MG
     Route: 048
  2. DOXYLAMINE [Suspect]
     Active Substance: DOXYLAMINE
     Indication: PRODUCT USED FOR UNKNOWN INDICATION
     Dosage: 192 TABLETS OF 25 MG
     Route: 048

REACTIONS (8)
  - Renal necrosis [Unknown]
  - Completed suicide [Fatal]
  - Multiple organ dysfunction syndrome [Unknown]
  - Pneumonia [Unknown]
  - Colon gangrene [Unknown]
  - Toxicity to various agents [Unknown]
  - Myocardial necrosis [Unknown]
  - Hepatic necrosis [Unknown]
